FAERS Safety Report 6887944-6 (Version None)
Quarter: 2010Q3

REPORT INFORMATION
  Report Type: 
  Country: None (occurrence: None)
  Receive Date: 20100730
  Receipt Date: 20100726
  Transmission Date: 20110219
  Serious: Yes (Congenital Anomaly)
  Sender: FDA-Public Use
  Company Number: A0816640A

PATIENT

DRUGS (6)
  1. COMBIVIR [Suspect]
     Indication: HIV INFECTION
     Dosage: 2TAB PER DAY
     Dates: start: 20090628, end: 20091113
  2. VIRAMUNE [Suspect]
     Indication: HIV INFECTION
     Dosage: 400MG PER DAY
     Dates: start: 20090628, end: 20090712
  3. KALETRA [Suspect]
     Indication: HIV INFECTION
     Dosage: 4TAB PER DAY
     Dates: start: 20090720, end: 20091008
  4. KALETRA [Suspect]
     Dosage: 6TAB PER DAY
     Dates: start: 20091008
  5. VIREAD [Suspect]
     Indication: HIV INFECTION
     Dosage: 300MGD PER DAY
     Dates: start: 20091113
  6. ISENTRESS [Suspect]
     Indication: HIV INFECTION
     Dosage: 800MGD PER DAY
     Dates: start: 20091114

REACTIONS (2)
  - ADRENAL CYST [None]
  - DRUG EXPOSURE DURING PREGNANCY [None]
